FAERS Safety Report 10612124 (Version 1)
Quarter: 2014Q4

REPORT INFORMATION
  Report Type: Spontaneous
  Country: DE (occurrence: DE)
  Receive Date: 20141127
  Receipt Date: 20141127
  Transmission Date: 20150529
  Serious: Yes (Other)
  Sender: FDA-Public Use
  Company Number: DE-AUROBINDO-AUR-APL-2014-12338

PATIENT
  Sex: Male
  Weight: 3.46 kg

DRUGS (1)
  1. QUETIAPINE 100MG LUPIN [Suspect]
     Active Substance: QUETIAPINE
     Indication: DEPRESSION
     Dosage: 100 MG, ONCE A DAY (DURING PREGNANCY AND AT LEAST FOR FURTHER 11 WEEKS AFTER BIRTH)
     Route: 063

REACTIONS (4)
  - Caesarean section [None]
  - Respiratory arrest [Recovered/Resolved]
  - Exposure during breast feeding [Unknown]
  - Foetal exposure during pregnancy [Unknown]
